FAERS Safety Report 15740472 (Version 1)
Quarter: 2018Q4

REPORT INFORMATION
  Report Type: Spontaneous
  Country: FR (occurrence: FR)
  Receive Date: 20181219
  Receipt Date: 20181219
  Transmission Date: 20190205
  Serious: Yes (Hospitalization, Disabling)
  Sender: FDA-Public Use
  Company Number: FR-PFIZER INC-2018513766

PATIENT
  Age: 52 Year
  Sex: Female
  Weight: 59 kg

DRUGS (3)
  1. TRUXIMA [Suspect]
     Active Substance: RITUXIMAB-ABBS
     Indication: PROGRESSIVE MULTIPLE SCLEROSIS
     Dosage: 1 G, 1X/DAY
     Route: 042
     Dates: start: 20180419, end: 20180502
  2. SOLU-MEDROL [Suspect]
     Active Substance: METHYLPREDNISOLONE SODIUM SUCCINATE
     Indication: PROGRESSIVE MULTIPLE SCLEROSIS
     Dosage: 1 DF, 1X/DAY
     Route: 042
     Dates: start: 20180331, end: 20180331
  3. CORTANCYL [Suspect]
     Active Substance: PREDNISONE
     Indication: IMMUNE THROMBOCYTOPENIC PURPURA
     Dosage: 1 MG/KG, 1X/DAY
     Route: 048
     Dates: start: 20180405, end: 201805

REACTIONS (1)
  - Meningoencephalitis herpetic [Not Recovered/Not Resolved]

NARRATIVE: CASE EVENT DATE: 20181008
